FAERS Safety Report 9512461 (Version 1)
Quarter: 2013Q1

REPORT INFORMATION
  Report Type: Spontaneous
  Country: US (occurrence: None)
  Receive Date: 20130305
  Receipt Date: 20130305
  Transmission Date: 20140127
  Serious: Yes (Hospitalization)
  Sender: FDA-Public Use
  Company Number: 163-21880-12042282

PATIENT
  Age: 65 Year
  Sex: Female
  Weight: 104.33 kg

DRUGS (1)
  1. REVLIMID (LENAALIDOMIDE) (10 MILLIGRAM, CAPSULES) [Suspect]
     Indication: PLASMA CELL MYELOMA
     Dosage: 10 MG, DAILY FOR 3 WEEKS ON, 1 WEEK OFF, PO
     Route: 048
     Dates: start: 20120402, end: 20120411

REACTIONS (7)
  - Anaemia [None]
  - Dehydration [None]
  - Diarrhoea [None]
  - Nausea [None]
  - Pyrexia [None]
  - Blood sodium decreased [None]
  - Blood calcium decreased [None]
